FAERS Safety Report 14800737 (Version 3)
Quarter: 2018Q2

REPORT INFORMATION
  Report Type: Spontaneous
  Country: US (occurrence: US)
  Receive Date: 20180424
  Receipt Date: 20180516
  Transmission Date: 20180711
  Serious: Yes (Death, Hospitalization)
  Sender: FDA-Public Use
  Company Number: US-JNJFOC-20180424044

PATIENT
  Age: 90 Year
  Sex: Female
  Weight: 41 kg

DRUGS (9)
  1. VALACYCLOVIR [Concomitant]
     Active Substance: VALACYCLOVIR HYDROCHLORIDE
  2. RALOXIFENE. [Concomitant]
     Active Substance: RALOXIFENE
  3. BACTRIM [Concomitant]
     Active Substance: SULFAMETHOXAZOLE\TRIMETHOPRIM
  4. IMBRUVICA [Suspect]
     Active Substance: IBRUTINIB
     Indication: WALDENSTROM^S MACROGLOBULINAEMIA
     Route: 048
     Dates: start: 20180125
  5. ASPIRIN. [Concomitant]
     Active Substance: ASPIRIN
  6. DOCUSATE [Concomitant]
     Active Substance: DOCUSATE
  7. GLUCOSAMINE [Concomitant]
     Active Substance: GLUCOSAMINE
  8. NAMENDA [Concomitant]
     Active Substance: MEMANTINE HYDROCHLORIDE
  9. MULTIVITAMINS [Concomitant]
     Active Substance: VITAMINS

REACTIONS (4)
  - Incorrect dose administered [Unknown]
  - Death [Fatal]
  - Pneumonia [Not Recovered/Not Resolved]
  - Off label use [Unknown]

NARRATIVE: CASE EVENT DATE: 20180125
